FAERS Safety Report 22303441 (Version 1)
Quarter: 2023Q2

REPORT INFORMATION
  Report Type: Report from Study
  Country: US (occurrence: US)
  Receive Date: 20230510
  Receipt Date: 20230510
  Transmission Date: 20230721
  Serious: Yes (Other)
  Sender: FDA-Public Use
  Company Number: US-ABBVIE-4760116

PATIENT
  Sex: Female

DRUGS (1)
  1. RINVOQ [Suspect]
     Active Substance: UPADACITINIB
     Indication: Psoriatic arthropathy
     Dosage: FORM STRENGTH: 15 MG    FIRST ADMIN DATE  MAR 2023
     Route: 048

REACTIONS (5)
  - Pain [Not Recovered/Not Resolved]
  - Muscle spasms [Unknown]
  - Nerve block [Unknown]
  - Fatigue [Not Recovered/Not Resolved]
  - Tendon injury [Unknown]

NARRATIVE: CASE EVENT DATE: 20230101
